FAERS Safety Report 5176386-X (Version None)
Quarter: 2006Q4

REPORT INFORMATION
  Report Type: 
  Country: None (occurrence: None)
  Receive Date: 20061215
  Receipt Date: 20061016
  Transmission Date: 20070319
  Serious: Yes (Other)
  Sender: FDA-Public Use
  Company Number: US-ROCHE-467674

PATIENT
  Age: 60 Year
  Sex: Male

DRUGS (4)
  1. PEGASYS [Suspect]
     Dosage: STRENGTH REPORTED AS: 180 MCG/0.5 ML.
     Route: 058
     Dates: start: 20060508
  2. PEGASYS [Suspect]
     Route: 058
     Dates: start: 20040615, end: 20040615
  3. RIBAVIRIN [Suspect]
     Route: 048
     Dates: start: 20060508
  4. RIBAVIRIN [Suspect]
     Route: 048
     Dates: start: 20040615, end: 20040615

REACTIONS (11)
  - ASTHENIA [None]
  - DEPRESSION [None]
  - DYSPNOEA [None]
  - EAR PAIN [None]
  - FATIGUE [None]
  - HEADACHE [None]
  - INSOMNIA [None]
  - MALAISE [None]
  - NEOPLASM RECURRENCE [None]
  - PROSTATE CANCER [None]
  - THINKING ABNORMAL [None]
